FAERS Safety Report 19058924 (Version 1)
Quarter: 2021Q1

REPORT INFORMATION
  Report Type: Spontaneous
  Country: US (occurrence: US)
  Receive Date: 20210325
  Receipt Date: 20210325
  Transmission Date: 20210420
  Serious: Yes (Other)
  Sender: FDA-Public Use
  Company Number: US-TAKEDA-2021TUS016483

PATIENT
  Age: 39 Year
  Sex: Male

DRUGS (1)
  1. ENTYVIO [Suspect]
     Active Substance: VEDOLIZUMAB
     Indication: COLITIS ULCERATIVE
     Dosage: 300 MILLIGRAM
     Route: 042

REACTIONS (9)
  - Sensory loss [Unknown]
  - Constipation [Unknown]
  - Flatulence [Unknown]
  - Bacterial infection [Unknown]
  - Therapeutic reaction time decreased [Unknown]
  - Peripheral swelling [Unknown]
  - Abdominal distension [Unknown]
  - Pain in extremity [Unknown]
  - Food allergy [Unknown]
